FAERS Safety Report 25006395 (Version 1)
Quarter: 2025Q1

REPORT INFORMATION
  Report Type: Spontaneous
  Country: IN (occurrence: IN)
  Receive Date: 20250224
  Receipt Date: 20250224
  Transmission Date: 20250408
  Serious: Yes (Life-Threatening)
  Sender: HETERO
  Company Number: IN-HETERO-HET2025IN00784

PATIENT
  Age: 60 Year
  Sex: Female

DRUGS (1)
  1. QUETIAPINE [Suspect]
     Active Substance: QUETIAPINE
     Indication: Psychiatric symptom
     Route: 065

REACTIONS (1)
  - Stevens-Johnson syndrome [Unknown]
